FAERS Safety Report 5221248-2 (Version None)
Quarter: 2007Q1

REPORT INFORMATION
  Report Type: 
  Country: None (occurrence: None)
  Receive Date: 20070126
  Receipt Date: 20070116
  Transmission Date: 20070707
  Serious: Yes (Hospitalization)
  Sender: FDA-Public Use
  Company Number: US-PFIZER INC-2006068459

PATIENT
  Sex: Female
  Weight: 59.5 kg

DRUGS (7)
  1. SUTENT [Suspect]
     Indication: GASTROINTESTINAL STROMAL TUMOUR
     Route: 048
  2. PROTONIX [Concomitant]
     Route: 048
  3. CITALOPRAM HYDROBROMIDE [Concomitant]
     Route: 048
  4. SYNTHROID [Concomitant]
     Route: 048
  5. TUMS [Concomitant]
     Route: 048
  6. METOCLOPRAMIDE [Concomitant]
     Route: 048
  7. LOPERAMIDE HCL [Concomitant]
     Route: 048

REACTIONS (1)
  - NEUROLOGICAL SYMPTOM [None]
